FAERS Safety Report 22646734 (Version 1)
Quarter: 2023Q2

REPORT INFORMATION
  Report Type: Spontaneous
  Country: US (occurrence: US)
  Receive Date: 20230627
  Receipt Date: 20230627
  Transmission Date: 20230721
  Serious: Yes (Other)
  Sender: FDA-Public Use
  Company Number: US-ELI_LILLY_AND_COMPANY-US202306015142

PATIENT
  Sex: Female

DRUGS (2)
  1. MOUNJARO [Suspect]
     Active Substance: TIRZEPATIDE
     Indication: Glucose tolerance impaired
     Dosage: UNK UNK, UNKNOWN
     Route: 065
     Dates: start: 202205
  2. MOUNJARO [Suspect]
     Active Substance: TIRZEPATIDE
     Indication: Obesity
     Dosage: 12.5 MG, UNKNOWN
     Route: 065

REACTIONS (2)
  - Rotator cuff syndrome [Unknown]
  - Off label use [Unknown]
